FAERS Safety Report 17482715 (Version 5)
Quarter: 2020Q2

REPORT INFORMATION
  Report Type: Spontaneous
  Country: US (occurrence: US)
  Receive Date: 20200302
  Receipt Date: 20200403
  Transmission Date: 20200713
  Serious: Yes (Death, Hospitalization, Other)
  Sender: FDA-Public Use
  Company Number: US-PFIZER INC-2020089736

PATIENT
  Age: 73 Year
  Sex: Female

DRUGS (31)
  1. METOPROLOL TARTRATE. [Concomitant]
     Active Substance: METOPROLOL TARTRATE
     Dosage: UNK, 2X/DAY (0.5 TABS)
     Route: 048
  2. INLYTA [Suspect]
     Active Substance: AXITINIB
     Indication: RENAL CELL CARCINOMA
     Dosage: 5 MG, 2X/DAY
     Route: 048
  3. TYLENOL [Concomitant]
     Active Substance: ACETAMINOPHEN
     Indication: PYREXIA
     Dosage: 650 MG, AS NEEDED (2 TABS, EVERY 4 HOURS AS NEEDED)
     Route: 048
  4. CARVEDILOL. [Concomitant]
     Active Substance: CARVEDILOL
     Dosage: 12.5 MG, 2X/DAY
     Route: 048
  5. INLYTA [Suspect]
     Active Substance: AXITINIB
     Indication: RENAL CANCER
     Dosage: 5 MG, UNK
  6. MYLANTA [Concomitant]
     Active Substance: ALUMINUM HYDROXIDE\DIMETHICONE\MAGNESIUM HYDROXIDE
     Indication: DYSPEPSIA
     Dosage: 20 ML, AS NEEDED (4 TIMES A DAY AS NEEDED)
     Route: 048
  7. ASPIRIN. [Concomitant]
     Active Substance: ASPIRIN
     Dosage: 81 MG, DAILY
     Route: 048
  8. TRAMADOL. [Concomitant]
     Active Substance: TRAMADOL
     Indication: PAIN
     Dosage: 50 MG, AS NEEDED (1-2 TABS PO (PER ORAL) EVERY 6 HOURS, NOT TO EXCEED 400 MG/ DAY)
     Route: 048
  9. JANUVIA [Concomitant]
     Active Substance: SITAGLIPTIN PHOSPHATE
     Dosage: 100 MG, DAILY
     Route: 048
  10. SENNA S [Concomitant]
     Active Substance: DOCUSATE SODIUM\SENNA LEAF
     Dosage: 1 DF, 2X/DAY
     Route: 048
  11. LANTUS [Concomitant]
     Active Substance: INSULIN GLARGINE
     Indication: HYPOTENSION
     Dosage: 42 IU, 2X/DAY
     Route: 058
  12. MIRTAZAPINE. [Concomitant]
     Active Substance: MIRTAZAPINE
     Dosage: 7.5 MG, 1X/DAY (AT BEDTIME)
     Route: 048
  13. PROTONIX [Concomitant]
     Active Substance: PANTOPRAZOLE SODIUM
     Dosage: 40 MG, DAILY
     Route: 048
  14. ALPHA LIPOIC ACID [Concomitant]
     Active Substance: .ALPHA.-LIPOIC ACID
     Dosage: 600 MG, DAILY
     Route: 048
  15. AMLODIPINE [Concomitant]
     Active Substance: AMLODIPINE BESYLATE
     Dosage: 5 MG, DAILY
     Route: 048
  16. HUMALOG [Concomitant]
     Active Substance: INSULIN LISPRO
     Indication: HYPERGLYCAEMIA
     Dosage: UNK, AS NEEDED(CARB RATIO1: 15; 1 UNIT FOR EVERY 15 GRAMS OF CARBOHYDRATE CONSUMED WITH MEALS)(1-10)
     Route: 058
  17. INSULIN LISPRO [Concomitant]
     Active Substance: INSULIN LISPRO
     Indication: HYPERGLYCAEMIA
     Dosage: UNK, AS NEEDED (BEFORE MEALS AND AT BEDTIME, 1 UNIT OF INSULIN FOR EVERY 30 MG/ DL/140 MG/DL)(1-9 U)
     Route: 058
  18. MIRALAX [Concomitant]
     Active Substance: POLYETHYLENE GLYCOL 3350
     Indication: CONSTIPATION
     Dosage: 17 G, AS NEEDED (2 TIMES A DAY AS NEEDED)
     Route: 048
  19. RESTORIL [Concomitant]
     Active Substance: TEMAZEPAM
     Indication: SLEEP DISORDER
     Dosage: 30 MG, AS NEEDED (DAILY AT BEDTIME AS NEEDED)
     Route: 048
  20. TORSEMIDE. [Concomitant]
     Active Substance: TORSEMIDE
     Indication: DIURETIC THERAPY
     Dosage: 40 MG, DAILY
     Route: 048
  21. HALOBETASOL [Concomitant]
     Active Substance: HALOBETASOL PROPIONATE
     Dosage: UNK, 2X/DAY
     Route: 061
  22. NOVOLIN NOS [Concomitant]
     Active Substance: INSULIN HUMAN
     Dosage: 22 IU, 3X/DAY(3 TIMES A DAY BEFORE MEALS)
     Route: 058
  23. MONOJECT INSULIN SYRINGE [Concomitant]
     Dosage: UNK, 1X/DAY(1 SYRINGES)(AT BEDTIME)
     Route: 058
  24. TRIAMCINOLONE [Concomitant]
     Active Substance: TRIAMCINOLONE
     Dosage: UNK, 2X/DAY (APPLY A THIN FILM TWICE A DAY TO THE AFFECTED AREA)
     Route: 061
  25. ULORIC [Concomitant]
     Active Substance: FEBUXOSTAT
     Indication: GOUT
     Dosage: 40 MG, DAILY
     Route: 048
  26. METFORMIN [Concomitant]
     Active Substance: METFORMIN HYDROCHLORIDE
     Dosage: 500 MG, 2X/DAY
     Route: 048
  27. LANTUS [Concomitant]
     Active Substance: INSULIN GLARGINE
     Indication: CARDIOGENIC SHOCK
  28. QUETIAPINE. [Concomitant]
     Active Substance: QUETIAPINE
     Dosage: 25 MG, 1X/DAY (AT BEDTIME)
     Route: 048
  29. TYLENOL [Concomitant]
     Active Substance: ACETAMINOPHEN
     Indication: PAIN
  30. VITAMIN B12 [Concomitant]
     Active Substance: CYANOCOBALAMIN
     Dosage: 1 ML, MONTHLY
     Route: 030
  31. LOSARTAN. [Concomitant]
     Active Substance: LOSARTAN
     Dosage: 100 MG, DAILY
     Route: 048

REACTIONS (18)
  - Pancytopenia [Unknown]
  - Neoplasm progression [Unknown]
  - Dyspnoea [Unknown]
  - Gastrointestinal haemorrhage [Unknown]
  - Hypercalcaemia [Unknown]
  - Acute respiratory failure [Unknown]
  - Second primary malignancy [Unknown]
  - Pneumonia [Unknown]
  - Hypotension [Unknown]
  - Waldenstrom^s macroglobulinaemia [Unknown]
  - Tibia fracture [Unknown]
  - Haemorrhage urinary tract [Unknown]
  - Anaemia [Unknown]
  - Death [Fatal]
  - Fibula fracture [Unknown]
  - Fatigue [Unknown]
  - Asthenia [Unknown]
  - Fall [Unknown]

NARRATIVE: CASE EVENT DATE: 20200118
